FAERS Safety Report 4317459-0 (Version None)
Quarter: 2004Q1

REPORT INFORMATION
  Report Type: 
  Country: None (occurrence: None)
  Receive Date: 20040312
  Receipt Date: 20030520
  Transmission Date: 20041129
  Serious: Yes (Death)
  Sender: FDA-Public Use
  Company Number: 2004-BP-01826RP

PATIENT
  Age: 71 Year
  Sex: Male

DRUGS (2)
  1. AGGRENOX [Suspect]
     Indication: CEREBROVASCULAR ACCIDENT
     Dosage: 400/50 MG (SEE TEXT,  1 CAP BID PO
     Route: 048
  2. AGGRENOX [Suspect]
     Indication: LACUNAR INFARCTION
     Dosage: 400/50 MG (SEE TEXT,  1 CAP BID PO
     Route: 048

REACTIONS (1)
  - PNEUMONIA [None]
